FAERS Safety Report 22371665 (Version 2)
Quarter: 2023Q2

REPORT INFORMATION
  Report Type: Spontaneous
  Country: US (occurrence: US)
  Receive Date: 20230526
  Receipt Date: 20230627
  Transmission Date: 20230721
  Serious: Yes (Other)
  Sender: FDA-Public Use
  Company Number: US-BEH-2023159028

PATIENT
  Age: 2 Year
  Sex: Male

DRUGS (2)
  1. HUMATE-P [Suspect]
     Active Substance: HUMAN COAGULATION FACTOR VIII/VON WILLEBRAND FACTOR COMPLEX
     Indication: Von Willebrand^s disease
     Dosage: 450 INTERNATIONAL UNITS (405-521 RCOF UNITS), TIW
     Route: 042
     Dates: start: 202305
  2. HUMATE-P [Suspect]
     Active Substance: HUMAN COAGULATION FACTOR VIII/VON WILLEBRAND FACTOR COMPLEX
     Dosage: 450 INTERNATIONAL UNITS (405-521 RCOF UNITS), Q12-24 HOURS, PRN
     Route: 042
     Dates: start: 202305

REACTIONS (4)
  - Traumatic haemorrhage [Unknown]
  - Skin abrasion [Unknown]
  - Fall [Unknown]
  - Ill-defined disorder [Unknown]

NARRATIVE: CASE EVENT DATE: 20230606
